FAERS Safety Report 4981110-7 (Version None)
Quarter: 2006Q1

REPORT INFORMATION
  Report Type: 
  Country: None (occurrence: None)
  Receive Date: 20060227
  Receipt Date: 20050302
  Transmission Date: 20060701
  Serious: Yes (Hospitalization)
  Sender: FDA-Public Use
  Company Number: WAES 0503USA00318

PATIENT
  Age: 78 Year
  Sex: Female

DRUGS (7)
  1. ZOCOR [Suspect]
     Indication: HYPERLIPIDAEMIA
     Dosage: 80 MG/DAILY/PO
     Route: 048
     Dates: end: 20050222
  2. VERAPAMIL [Suspect]
     Indication: HYPERTENSION
     Dosage: 120 MG/DAILY/PO
     Route: 048
     Dates: start: 20041105, end: 20050222
  3. VERAPAMIL [Suspect]
     Indication: RENAL FAILURE
     Dosage: 120 MG/DAILY/PO
     Route: 048
     Dates: start: 20041105, end: 20050222
  4. ALTACE [Concomitant]
  5. PLAVIX [Concomitant]
  6. ASPIRIN [Concomitant]
  7. GLYBURIDE [Concomitant]

REACTIONS (4)
  - CHOLELITHIASIS [None]
  - DRUG INTERACTION [None]
  - HEPATIC ENZYME INCREASED [None]
  - RHABDOMYOLYSIS [None]
